FAERS Safety Report 11667614 (Version 1)
Quarter: 2015Q4

REPORT INFORMATION
  Report Type: Report from Study
  Country: GB (occurrence: GB)
  Receive Date: 20151027
  Receipt Date: 20151027
  Transmission Date: 20160304
  Serious: Yes (Other)
  Sender: FDA-Public Use
  Company Number: GB-BAYER-2015-444408

PATIENT
  Sex: Male

DRUGS (1)
  1. MOVOFLOXACIN [Suspect]
     Active Substance: MOXIFLOXACIN

REACTIONS (2)
  - Extrasystoles [None]
  - Nodal rhythm [None]
